FAERS Safety Report 6457643-3 (Version None)
Quarter: 2009Q4

REPORT INFORMATION
  Report Type: 
  Country: None (occurrence: None)
  Receive Date: 20091123
  Receipt Date: 20091117
  Transmission Date: 20100525
  Serious: Yes (Other)
  Sender: FDA-Public Use
  Company Number: 09-496

PATIENT
  Age: 63 Year
  Sex: Male

DRUGS (8)
  1. ALEVE (CAPLET) [Suspect]
     Indication: PROSTATE INFECTION
     Dosage: 220 MG, ORAL
     Route: 048
     Dates: start: 20080101
  2. FINASTERIDE [Suspect]
  3. TERAZOSIN HCL [Suspect]
  4. OMEPRAZOLE [Suspect]
  5. TURMERIC [Concomitant]
  6. FISH OIL [Concomitant]
  7. MILK THISTLE [Concomitant]
  8. UNKNOWN [Concomitant]

REACTIONS (3)
  - DRY EYE [None]
  - RETINAL DETACHMENT [None]
  - VITREOUS FLOATERS [None]
